FAERS Safety Report 5777118-4 (Version None)
Quarter: 2008Q2

REPORT INFORMATION
  Report Type: 
  Country: None (occurrence: None)
  Receive Date: 20080617
  Receipt Date: 20080617
  Transmission Date: 20081010
  Serious: Yes (Hospitalization)
  Sender: FDA-Public Use
  Company Number: None

PATIENT
  Age: 57 Year
  Sex: Male

DRUGS (6)
  1. DEXAMETHASONE [Suspect]
     Indication: NEOPLASM MALIGNANT
     Dosage: 8MG PO Q12
     Route: 048
     Dates: start: 20080513, end: 20080514
  2. ENOXAPARIN SODIUM [Concomitant]
  3. CISPLATIN [Concomitant]
  4. DOCETAXEL [Concomitant]
  5. AMOX/CLAV [Concomitant]
  6. DOCUSATE [Concomitant]

REACTIONS (1)
  - BLOOD GLUCOSE INCREASED [None]
